FAERS Safety Report 10023648 (Version 2)
Quarter: 2014Q2

REPORT INFORMATION
  Report Type: Spontaneous
  Country: US (occurrence: None)
  Receive Date: 20140108
  Receipt Date: 20140515
  Transmission Date: 20141212
  Serious: Yes (Other)
  Sender: FDA-Public Use
  Company Number: ADR-2013-02289

PATIENT
  Age: 74 Year
  Sex: Male

DRUGS (9)
  1. BACLOFEN [Suspect]
     Dates: start: 20110128
  2. LIPITOR [Suspect]
  3. CELEBREX [Suspect]
  4. PLAVIX [Suspect]
  5. COLACE [Suspect]
  6. LEXAPRO [Suspect]
  7. PROVIGIL [Suspect]
  8. PRILOSEC [Suspect]
  9. FLOMAX [Suspect]

REACTIONS (10)
  - Nausea [None]
  - Muscle tightness [None]
  - Muscle spasticity [None]
  - Tremor [None]
  - Insomnia [None]
  - Hyperhidrosis [None]
  - Drug withdrawal syndrome [None]
  - Vomiting [None]
  - Chills [None]
  - Restlessness [None]
